FAERS Safety Report 14449764 (Version 2)
Quarter: 2019Q1

REPORT INFORMATION
  Report Type: Other
  Country: US (occurrence: US)
  Receive Date: 20180128
  Receipt Date: 20190126
  Transmission Date: 20190417
  Serious: Yes (Hospitalization)
  Sender: FDA-Public Use
  Company Number: US-ACORDA-ACO_136405_2017

PATIENT
  Sex: Female

DRUGS (1)
  1. AMPYRA [Suspect]
     Active Substance: DALFAMPRIDINE
     Indication: MULTIPLE SCLEROSIS
     Dosage: 10 MG, BID (12 HOURS APART)
     Route: 048
     Dates: start: 20131001

REACTIONS (6)
  - Vomiting [Unknown]
  - Urosepsis [Recovered/Resolved]
  - Dysuria [Unknown]
  - Stress [Unknown]
  - Multiple sclerosis relapse [Recovered/Resolved]
  - Nausea [Unknown]
